FAERS Safety Report 5743521-1 (Version None)
Quarter: 2008Q2

REPORT INFORMATION
  Report Type: 
  Country: None (occurrence: None)
  Receive Date: 20080519
  Receipt Date: 20080519
  Transmission Date: 20081010
  Serious: Yes (Other)
  Sender: FDA-Public Use
  Company Number: None

PATIENT
  Sex: Female
  Weight: 46.7205 kg

DRUGS (2)
  1. NUVARING [Suspect]
     Indication: CONTRACEPTION
     Dates: start: 20080410, end: 20080430
  2. NUVARING -ETONOGESTREL/ETHINYL SETRADIOL VAGINAL RING- [Concomitant]

REACTIONS (2)
  - THROMBOSIS [None]
  - VAGINAL HAEMORRHAGE [None]
